FAERS Safety Report 10060983 (Version 10)
Quarter: 2018Q2

REPORT INFORMATION
  Report Type: Report from Study
  Country: CA (occurrence: CA)
  Receive Date: 20140405
  Receipt Date: 20180601
  Transmission Date: 20180711
  Serious: Yes (Hospitalization, Other)
  Sender: FDA-Public Use
  Company Number: CA-ROCHE-1292211

PATIENT
  Age: 49 Year
  Sex: Female

DRUGS (10)
  1. RIVOTRIL [Suspect]
     Active Substance: CLONAZEPAM
     Indication: PRODUCT USED FOR UNKNOWN INDICATION
     Route: 048
  2. METHYLPREDNISOLONE. [Concomitant]
     Active Substance: METHYLPREDNISOLONE
     Route: 042
     Dates: start: 20151027
  3. CYCLOSPORINE. [Concomitant]
     Active Substance: CYCLOSPORINE
  4. RITUXAN [Suspect]
     Active Substance: RITUXIMAB
     Dosage: 500 MG ON DAY 1 AND 1000 MG ON DAY 15
     Route: 042
     Dates: start: 20141027, end: 20141110
  5. DIPHENHYDRAMINE HCL [Concomitant]
     Active Substance: DIPHENHYDRAMINE HYDROCHLORIDE
     Indication: PREMEDICATION
     Route: 048
     Dates: start: 20130424
  6. PREDNISONE. [Concomitant]
     Active Substance: PREDNISONE
  7. RITUXAN [Suspect]
     Active Substance: RITUXIMAB
     Dosage: 1000 MG ON DAY 1 AND 500 MG ON DAY 15
     Route: 042
     Dates: start: 20170428, end: 20170511
  8. RITUXAN [Suspect]
     Active Substance: RITUXIMAB
     Indication: POLYMYOSITIS
     Dosage: LAST DOSE PRIOR TO SAE WAS ON 08/MAY/2013, INFUSION STOPPED.
     Route: 042
     Dates: start: 20130424
  9. METHYLPREDNISOLONE. [Concomitant]
     Active Substance: METHYLPREDNISOLONE
     Indication: PREMEDICATION
     Route: 042
     Dates: start: 20130424, end: 20150311
  10. ACETAMINOPHEN. [Concomitant]
     Active Substance: ACETAMINOPHEN
     Indication: PREMEDICATION
     Route: 048
     Dates: start: 20130424

REACTIONS (13)
  - Fatigue [Recovered/Resolved]
  - Myositis [Not Recovered/Not Resolved]
  - Labyrinthitis [Not Recovered/Not Resolved]
  - Headache [Not Recovered/Not Resolved]
  - Nasopharyngitis [Recovering/Resolving]
  - Intentional product use issue [Unknown]
  - Eye irritation [Recovered/Resolved]
  - Infusion related reaction [Recovered/Resolved]
  - Alopecia [Not Recovered/Not Resolved]
  - White blood cell count decreased [Unknown]
  - Viral infection [Recovering/Resolving]
  - Off label use [Unknown]
  - Respiratory disorder [Recovering/Resolving]

NARRATIVE: CASE EVENT DATE: 20131104
